FAERS Safety Report 11002848 (Version 2)
Quarter: 2015Q3

REPORT INFORMATION
  Report Type: Spontaneous
  Country: US (occurrence: US)
  Receive Date: 20150408
  Receipt Date: 20150713
  Transmission Date: 20151125
  Serious: Yes (Death, Hospitalization, Other)
  Sender: FDA-Public Use
  Company Number: US-009507513-1504USA003764

PATIENT
  Sex: Female

DRUGS (2)
  1. JANUVIA [Suspect]
     Active Substance: SITAGLIPTIN PHOSPHATE
     Indication: DIABETES MELLITUS
     Dosage: 100 MG, QD
     Route: 048
     Dates: start: 20100609, end: 20130428
  2. JANUMET [Suspect]
     Active Substance: METFORMIN HYDROCHLORIDE\SITAGLIPTIN PHOSPHATE
     Dosage: 50 MG/500 MG, BID
     Route: 048
     Dates: start: 20080805, end: 20100609

REACTIONS (20)
  - Adenocarcinoma pancreas [Fatal]
  - Thyroidectomy [Unknown]
  - Diverticulitis [Recovering/Resolving]
  - Large intestinal obstruction [Unknown]
  - Gastrointestinal candidiasis [Unknown]
  - Metastases to peritoneum [Unknown]
  - Hypomagnesaemia [Recovered/Resolved]
  - Hypokalaemia [Recovered/Resolved]
  - Thyroid cancer [Unknown]
  - Hypothyroidism [Unknown]
  - Hyperlipidaemia [Unknown]
  - Biopsy [Unknown]
  - Chronic obstructive pulmonary disease [Not Recovered/Not Resolved]
  - Diverticulum [Unknown]
  - Metastases to lymph nodes [Unknown]
  - Clostridium difficile colitis [Unknown]
  - Gastrooesophageal reflux disease [Unknown]
  - Ileostomy [Unknown]
  - Essential hypertension [Unknown]
  - Fatigue [Unknown]

NARRATIVE: CASE EVENT DATE: 20130304
